FAERS Safety Report 5806591-8 (Version None)
Quarter: 2008Q3

REPORT INFORMATION
  Report Type: 
  Country: None (occurrence: None)
  Receive Date: 20080710
  Receipt Date: 20080626
  Transmission Date: 20090109
  Serious: Yes (Other)
  Sender: FDA-Public Use
  Company Number: PHHY2008JP08115

PATIENT
  Sex: Female

DRUGS (2)
  1. NEORAL [Suspect]
     Indication: PSORIASIS
     Dosage: 150 MG/ DAY
     Route: 048
     Dates: start: 20080513
  2. HORMONES [Concomitant]
     Indication: PSORIASIS

REACTIONS (1)
  - PANCYTOPENIA [None]
